FAERS Safety Report 4772159-8 (Version None)
Quarter: 2005Q3

REPORT INFORMATION
  Report Type: 
  Country: None (occurrence: None)
  Receive Date: 20050919
  Receipt Date: 20040908
  Transmission Date: 20060218
  Serious: No
  Sender: FDA-Public Use
  Company Number: US-BRISTOL-MYERS SQUIBB COMPANY-12696472

PATIENT
  Age: 31 Year
  Sex: Female

DRUGS (2)
  1. DEFINITY [Suspect]
     Route: 040
     Dates: start: 20040907, end: 20040907
  2. SEPTRA [Suspect]

REACTIONS (3)
  - INJECTION SITE INFLAMMATION [None]
  - PRURITUS [None]
  - RASH [None]
